FAERS Safety Report 9936047 (Version 1)
Quarter: 2014Q1

REPORT INFORMATION
  Report Type: Spontaneous
  Country: US (occurrence: US)
  Receive Date: 20140228
  Receipt Date: 20140228
  Transmission Date: 20141002
  Serious: No
  Sender: FDA-Public Use
  Company Number: US-AMGEN-USASP2013079068

PATIENT
  Age: 33 Year
  Sex: Female
  Weight: 62.59 kg

DRUGS (3)
  1. ENBREL [Suspect]
     Indication: PRODUCT USED FOR UNKNOWN INDICATION
     Dosage: 50 MG, ONCE A WEEK
     Route: 058
  2. LEVOTHYROXIN [Concomitant]
     Dosage: 75 MCG, UNK
  3. PREDNISONE [Concomitant]
     Dosage: 1 MG, UNK

REACTIONS (1)
  - Injection site urticaria [Unknown]
